FAERS Safety Report 9745397 (Version 1)
Quarter: 2013Q4

REPORT INFORMATION
  Report Type: Report from Study
  Country: BR (occurrence: BR)
  Receive Date: 20131211
  Receipt Date: 20131211
  Transmission Date: 20140711
  Serious: Yes (Hospitalization, Other)
  Sender: FDA-Public Use
  Company Number: PHHY2013BR144315

PATIENT
  Sex: Female

DRUGS (2)
  1. EXELON PATCH [Suspect]
     Indication: DELIRIUM
     Dosage: 4.6 MG (PATCH 5 CM2) EVERY 24 HOURS
     Route: 062
  2. EXELON PATCH [Suspect]
     Indication: OFF LABEL USE

REACTIONS (3)
  - Neoplasm malignant [Not Recovered/Not Resolved]
  - Lymphoma [Not Recovered/Not Resolved]
  - Pain [Unknown]
